FAERS Safety Report 7273483-X (Version None)
Quarter: 2011Q1

REPORT INFORMATION
  Report Type: 
  Country: None (occurrence: None)
  Receive Date: 20110203
  Receipt Date: 20110125
  Transmission Date: 20110831
  Serious: Yes (Death)
  Sender: FDA-Public Use
  Company Number: US-CELGENEUS-163-21880-10122182

PATIENT
  Sex: Male

DRUGS (6)
  1. MORPHINE [Concomitant]
     Route: 065
  2. AMITRIPTYLINE HCL [Concomitant]
     Route: 065
  3. ISMN [Concomitant]
     Route: 065
  4. REVLIMID [Suspect]
     Indication: MULTIPLE MYELOMA
     Route: 048
     Dates: start: 20101118, end: 20101212
  5. ASPIRIN [Concomitant]
     Route: 065
  6. DEXAMETHASONE [Concomitant]
     Route: 065

REACTIONS (1)
  - MYOCARDIAL INFARCTION [None]
